FAERS Safety Report 11937534 (Version 10)
Quarter: 2024Q4

REPORT INFORMATION
  Report Type: Report from Study
  Country: CA (occurrence: CA)
  Receive Date: 20160121
  Receipt Date: 20241106
  Transmission Date: 20250114
  Serious: Yes (Hospitalization, Other)
  Sender: ROCHE
  Company Number: CA-ROCHE-1697386

PATIENT
  Age: 34 Year
  Sex: Female

DRUGS (12)
  1. XOLAIR [Suspect]
     Active Substance: OMALIZUMAB
     Indication: Asthma
     Route: 058
     Dates: start: 20110526
  2. XOLAIR [Suspect]
     Active Substance: OMALIZUMAB
     Route: 058
     Dates: start: 20140602
  3. XOLAIR [Suspect]
     Active Substance: OMALIZUMAB
     Route: 058
     Dates: start: 20150921, end: 20150921
  4. XOLAIR [Suspect]
     Active Substance: OMALIZUMAB
     Route: 058
     Dates: start: 20191205
  5. XOLAIR [Suspect]
     Active Substance: OMALIZUMAB
     Route: 058
     Dates: start: 20190702
  6. XOLAIR [Suspect]
     Active Substance: OMALIZUMAB
     Route: 058
     Dates: start: 20230619
  7. XOLAIR [Suspect]
     Active Substance: OMALIZUMAB
     Route: 058
  8. CORTISONE [Concomitant]
     Active Substance: CORTISONE
     Indication: Product used for unknown indication
  9. SYMBICORT [Concomitant]
     Active Substance: BUDESONIDE\FORMOTEROL FUMARATE DIHYDRATE
     Indication: Product used for unknown indication
     Dosage: 2 DF, TID
     Route: 065
  10. SPIRIVA [Concomitant]
     Active Substance: TIOTROPIUM BROMIDE MONOHYDRATE
     Indication: Product used for unknown indication
  11. BRICANYL [Concomitant]
     Active Substance: TERBUTALINE SULFATE
     Indication: Product used for unknown indication
     Dosage: 8 TIMES IN A DAY
     Route: 055
  12. ALBUTEROL [Concomitant]
     Active Substance: ALBUTEROL
     Indication: Product used for unknown indication
     Dosage: 3 TO 4 TIMES IN A WEEK
     Route: 065

REACTIONS (27)
  - Asthma [Recovering/Resolving]
  - Cough [Not Recovered/Not Resolved]
  - Wheezing [Not Recovered/Not Resolved]
  - Discomfort [Unknown]
  - Pneumonia [Unknown]
  - Heart rate increased [Unknown]
  - Insomnia [Unknown]
  - Dust allergy [Unknown]
  - Perfume sensitivity [Unknown]
  - Throat clearing [Unknown]
  - Sensitivity to weather change [Unknown]
  - Perennial allergy [Unknown]
  - Sinusitis [Recovering/Resolving]
  - Productive cough [Not Recovered/Not Resolved]
  - Upper-airway cough syndrome [Unknown]
  - Peak expiratory flow rate abnormal [Not Recovered/Not Resolved]
  - Hiatus hernia [Unknown]
  - Airway remodelling [Unknown]
  - Nasopharyngitis [Unknown]
  - Hypersensitivity [Unknown]
  - Product storage error [Unknown]
  - Blood immunoglobulin E increased [Unknown]
  - Dyspnoea [Not Recovered/Not Resolved]
  - Neutrophil count increased [Unknown]
  - Chest discomfort [Not Recovered/Not Resolved]
  - Frustration tolerance decreased [Unknown]
  - Obstructive airways disorder [Unknown]

NARRATIVE: CASE EVENT DATE: 20151214
